FAERS Safety Report 21287096 (Version 1)
Quarter: 2022Q3

REPORT INFORMATION
  Report Type: Spontaneous
  Country: US (occurrence: US)
  Receive Date: 20220902
  Receipt Date: 20220902
  Transmission Date: 20221026
  Serious: No
  Sender: FDA-Public Use
  Company Number: US-ORGANON-O2208USA001049

PATIENT
  Age: 19 Year
  Sex: Female

DRUGS (2)
  1. NEXPLANON [Suspect]
     Active Substance: ETONOGESTREL
     Indication: Contraception
     Dosage: 1 IMPLANT
     Route: 059
  2. NEXPLANON [Suspect]
     Active Substance: ETONOGESTREL
     Indication: Contraception
     Dosage: 1 IMPLANT, RIGHT ARM IMPLANT
     Route: 059
     Dates: start: 20220625

REACTIONS (4)
  - Vaginal haemorrhage [Unknown]
  - Headache [Unknown]
  - Heavy menstrual bleeding [Not Recovered/Not Resolved]
  - Vaginal discharge [Unknown]

NARRATIVE: CASE EVENT DATE: 20220601
